FAERS Safety Report 9659163 (Version 1)
Quarter: 2013Q4

REPORT INFORMATION
  Report Type: Spontaneous
  Country: US (occurrence: US)
  Receive Date: 20131031
  Receipt Date: 20131031
  Transmission Date: 20140711
  Serious: No
  Sender: FDA-Public Use
  Company Number: US-009507513-1310USA011080

PATIENT
  Age: 41 Year
  Sex: Female

DRUGS (4)
  1. PROVENTIL [Suspect]
     Indication: ASTHMA
     Dosage: UNSPECIFIED/ ^AS NEEDED^
     Route: 055
     Dates: start: 2013
  2. PROVENTIL [Suspect]
     Dosage: UNK
     Route: 055
     Dates: end: 2013
  3. ADVAIR [Concomitant]
  4. PREDNISONE [Concomitant]
     Dosage: UNK
     Route: 048

REACTIONS (5)
  - Dyspnoea [Recovered/Resolved]
  - Drug ineffective [Unknown]
  - Drug dose omission [Unknown]
  - Product quality issue [Unknown]
  - Inappropriate schedule of drug administration [Unknown]
